FAERS Safety Report 24194712 (Version 1)
Quarter: 2024Q3

REPORT INFORMATION
  Report Type: Spontaneous
  Country: GB (occurrence: GB)
  Receive Date: 20240809
  Receipt Date: 20240809
  Transmission Date: 20241016
  Serious: Yes (Other)
  Sender: BAXTER
  Company Number: None

PATIENT
  Sex: Female

DRUGS (1)
  1. SCOPOLAMINE [Suspect]
     Active Substance: SCOPOLAMINE
     Indication: Nausea
     Dosage: (INVENTED NAME: SCOPODERM (SPECIFIC MP GROUP PGR5418978)
     Route: 065

REACTIONS (1)
  - Thermal burn [Recovering/Resolving]
